FAERS Safety Report 15332091 (Version 2)
Quarter: 2019Q1

REPORT INFORMATION
  Report Type: Spontaneous
  Country: DE (occurrence: DE)
  Receive Date: 20180829
  Receipt Date: 20190309
  Transmission Date: 20190417
  Serious: Yes (Hospitalization, Other)
  Sender: FDA-Public Use
  Company Number: PHHY2018DE079229

PATIENT
  Age: 77 Year
  Sex: Female
  Weight: 87 kg

DRUGS (29)
  1. HYDROCHLOROTHIAZIDE. [Concomitant]
     Active Substance: HYDROCHLOROTHIAZIDE
     Indication: DIURETIC THERAPY
     Dosage: 25 MG, QD
     Route: 048
  2. DAPSON [Concomitant]
     Active Substance: DAPSONE
     Indication: DERMATOSIS
     Dosage: 50 MG, QD
     Route: 048
  3. DULOXETINE. [Concomitant]
     Active Substance: DULOXETINE
     Indication: PRODUCT USED FOR UNKNOWN INDICATION
     Dosage: 300 MG, UNK
     Route: 048
  4. PREDNISOLONE. [Concomitant]
     Active Substance: PREDNISOLONE
     Dosage: 7.5 MG, QD (DAILY DOSE)
     Route: 048
  5. INSULIN GLARGINE [Concomitant]
     Active Substance: INSULIN GLARGINE
     Indication: TYPE 2 DIABETES MELLITUS
     Dosage: UNK
     Route: 058
  6. CLOPIDOGREL HYDROGEN SULPHATE [Suspect]
     Active Substance: CLOPIDOGREL BISULFATE
     Indication: PRODUCT USED FOR UNKNOWN INDICATION
     Dosage: 75 MG, QD (DAILY DOSE)
     Route: 048
     Dates: start: 20180320
  7. APIXABAN [Suspect]
     Active Substance: APIXABAN
     Indication: PRODUCT USED FOR UNKNOWN INDICATION
     Dosage: UNK
     Route: 065
  8. FEXOFENADINE [Concomitant]
     Active Substance: FEXOFENADINE\FEXOFENADINE HYDROCHLORIDE
     Indication: RHINITIS ALLERGIC
     Dosage: 180 MG, QD (DAILY)
     Route: 048
  9. AMPICILLIN AND SULBACTAM [Concomitant]
     Active Substance: AMPICILLIN SODIUM\SULBACTAM SODIUM
     Indication: PRODUCT USED FOR UNKNOWN INDICATION
     Dosage: 3000 MG, UNK
     Route: 042
  10. MONODEX [Concomitant]
     Active Substance: DEXAMETHASONE
     Indication: CONJUNCTIVITIS
     Dosage: UNK, QD
     Route: 065
  11. OXYCODON [Concomitant]
     Active Substance: OXYCODONE
     Indication: ANALGESIC THERAPY
     Dosage: 20 MG, QD
     Route: 048
  12. ACETYLSALICYLIC ACID [Suspect]
     Active Substance: ASPIRIN
     Indication: PRODUCT USED FOR UNKNOWN INDICATION
     Dosage: 100 MG, QD (DAILY DOSE)
     Route: 048
     Dates: start: 20180308, end: 20180605
  13. CANDESARTAN. [Concomitant]
     Active Substance: CANDESARTAN
     Dosage: 32 MG, QD (DAILY DOSE)
     Route: 048
  14. PREDNISOLONE. [Concomitant]
     Active Substance: PREDNISOLONE
     Indication: DERMATOSIS
     Dosage: 15 MG, QD
     Route: 048
  15. EMPAGLIFLOZIN [Concomitant]
     Active Substance: EMPAGLIFLOZIN
     Indication: TYPE 2 DIABETES MELLITUS
     Dosage: 25 MG, QD  (DAILY DOSE)
     Route: 048
  16. PANKREATIN [Concomitant]
     Active Substance: PANCRELIPASE
     Indication: PANCREATIC FAILURE
     Dosage: 2000 MG, QD
     Route: 048
  17. ATORVASTATIN [Concomitant]
     Active Substance: ATORVASTATIN
     Indication: HYPERCHOLESTEROLAEMIA
     Dosage: 10 MG, QD
     Route: 048
  18. SANDOCAL [Concomitant]
     Indication: PRODUCT USED FOR UNKNOWN INDICATION
     Dosage: 1000 MG, UNK
     Route: 048
  19. MIRTAZAPIN [Concomitant]
     Active Substance: MIRTAZAPINE
     Indication: ANALGESIC THERAPY
     Dosage: 15 MG, QD
     Route: 048
  20. TORASEMID [Concomitant]
     Active Substance: TORSEMIDE
     Indication: OEDEMA PERIPHERAL
     Dosage: 15 MG, QD
     Route: 048
  21. OMEPRAZOLE. [Concomitant]
     Active Substance: OMEPRAZOLE
     Indication: PROPHYLAXIS AGAINST GASTROINTESTINAL ULCER
     Dosage: 40 MG, QD (DAILY DOSE)
     Route: 048
  22. AMOXICILLIN. [Concomitant]
     Active Substance: AMOXICILLIN
     Indication: DIARRHOEA
     Dosage: 1750 MG, QD
     Route: 048
  23. PANTOPRAZOLE [Concomitant]
     Active Substance: PANTOPRAZOLE
     Indication: PROPHYLAXIS AGAINST GASTROINTESTINAL ULCER
     Dosage: 40 MG, UNK
     Route: 048
  24. CLAVULANIC ACID [Concomitant]
     Active Substance: CLAVULANIC ACID
     Indication: DIARRHOEA
     Dosage: 250 MG, QD
     Route: 048
  25. CLEXANE [Concomitant]
     Active Substance: ENOXAPARIN SODIUM
     Indication: THROMBOSIS PROPHYLAXIS
     Dosage: 40 MG, QD
     Route: 065
  26. RIFAMPICIN [Concomitant]
     Active Substance: RIFAMPIN
     Indication: DIARRHOEA
     Dosage: 900 MG, QD
     Route: 048
  27. CANDESARTAN. [Concomitant]
     Active Substance: CANDESARTAN
     Indication: HYPERTENSION
     Dosage: 16 MG, QD (DAILY DOSE)
     Route: 048
  28. LERCANIDIPINE [Concomitant]
     Active Substance: LERCANIDIPINE
     Indication: HYPERTENSION
     Dosage: 30 MG, QD
     Route: 048
  29. GANFORT [Concomitant]
     Active Substance: BIMATOPROST\TIMOLOL
     Indication: GLAUCOMA
     Dosage: UNK, QD
     Route: 065

REACTIONS (6)
  - Colitis microscopic [Recovered/Resolved]
  - Fall [Unknown]
  - Contusion [Recovered/Resolved]
  - Gastrointestinal haemorrhage [Recovered/Resolved]
  - Spinal instability [Not Recovered/Not Resolved]
  - Pseudomonas test positive [Unknown]

NARRATIVE: CASE EVENT DATE: 20180414
